FAERS Safety Report 11167657 (Version 1)
Quarter: 2015Q2

REPORT INFORMATION
  Report Type: Spontaneous
  Country: US (occurrence: None)
  Receive Date: 20150515
  Receipt Date: 20150515
  Transmission Date: 20150821
  Serious: Yes (Hospitalization, Other)
  Sender: FDA-Public Use
  Company Number: 2014022398

PATIENT
  Age: 35 Year
  Sex: Female
  Weight: 48 kg

DRUGS (1)
  1. CIMZIA [Suspect]
     Active Substance: CERTOLIZUMAB PEGOL
     Indication: CROHN^S DISEASE
     Dosage: EVERY 4 WEEKS
     Route: 058
     Dates: start: 20110928, end: 201501

REACTIONS (7)
  - Eye infection [None]
  - Crohn^s disease [None]
  - Pain in extremity [None]
  - Abdominal pain [None]
  - Ovarian cyst [None]
  - Proctitis [None]
  - Skin irritation [None]

NARRATIVE: CASE EVENT DATE: 20141203
